FAERS Safety Report 7237884-8 (Version None)
Quarter: 2011Q1

REPORT INFORMATION
  Report Type: 
  Country: None (occurrence: None)
  Receive Date: 20110121
  Receipt Date: 20110119
  Transmission Date: 20110831
  Serious: Yes (Other)
  Sender: FDA-Public Use
  Company Number: GR-ROCHE-754572

PATIENT
  Age: 26 Year
  Sex: Male

DRUGS (2)
  1. ROCEPHIN [Suspect]
     Route: 050
  2. VIBRAMYCIN [Concomitant]

REACTIONS (1)
  - URINARY TRACT INFECTION [None]
